FAERS Safety Report 4852112-6 (Version None)
Quarter: 2005Q4

REPORT INFORMATION
  Report Type: 
  Country: None (occurrence: None)
  Receive Date: 20051123
  Receipt Date: 20050902
  Transmission Date: 20060501
  Serious: No
  Sender: FDA-Public Use
  Company Number: 217477

PATIENT
  Age: 52 Year
  Sex: Female
  Weight: 97.7 kg

DRUGS (2)
  1. RAPTIVA [Suspect]
     Indication: PSORIASIS
     Dosage: 1 MG/KG, 1/WEEK, SUBCUTANEOUS
     Route: 058
     Dates: start: 20050601
  2. KEFLEX [Concomitant]

REACTIONS (1)
  - STAPHYLOCOCCAL INFECTION [None]
